FAERS Safety Report 13095958 (Version 1)
Quarter: 2017Q1

REPORT INFORMATION
  Report Type: Report from Study
  Country: US (occurrence: US)
  Receive Date: 20170109
  Receipt Date: 20170109
  Transmission Date: 20170428
  Serious: Yes (Hospitalization)
  Sender: FDA-Public Use
  Company Number: US-BIOGEN-2015BI146844

PATIENT
  Age: 56 Year
  Sex: Male

DRUGS (1)
  1. AVONEX [Suspect]
     Active Substance: INTERFERON BETA-1A
     Indication: MULTIPLE SCLEROSIS
     Route: 030
     Dates: start: 20000403

REACTIONS (5)
  - Hip arthroplasty [Recovered/Resolved]
  - Cerebrovascular accident [Recovered/Resolved]
  - Gastric disorder [Recovered/Resolved]
  - Congenital coagulopathy [Recovered/Resolved]
  - Hypoaesthesia [Not Recovered/Not Resolved]

NARRATIVE: CASE EVENT DATE: 201510
